FAERS Safety Report 11782634 (Version 1)
Quarter: 2015Q4

REPORT INFORMATION
  Report Type: Report from Study
  Country: KR (occurrence: KR)
  Receive Date: 20151127
  Receipt Date: 20151127
  Transmission Date: 20160305
  Serious: Yes (Other)
  Sender: FDA-Public Use
  Company Number: KR-ROCHE-1235796

PATIENT

DRUGS (3)
  1. CISPLATIN. [Suspect]
     Active Substance: CISPLATIN
     Indication: GASTRIC CANCER
     Dosage: 60-80 MG/M2
     Route: 048
  2. CAPECITABINE. [Suspect]
     Active Substance: CAPECITABINE
     Indication: GASTRIC CANCER
     Dosage: 800-1000 MG/M2
     Route: 048
  3. VORINOSTAT [Suspect]
     Active Substance: VORINOSTAT
     Indication: GASTRIC CANCER
     Dosage: 300-400 MG
     Route: 042

REACTIONS (11)
  - Decreased appetite [Unknown]
  - Stomatitis [Unknown]
  - Neutropenia [Unknown]
  - Vomiting [Unknown]
  - Thrombocytopenia [Unknown]
  - Fatigue [Unknown]
  - Nausea [Unknown]
  - Diarrhoea [Unknown]
  - Thrombosis [Unknown]
  - Anaemia [Unknown]
  - Embolism [Unknown]
